FAERS Safety Report 6768792-4 (Version None)
Quarter: 2010Q2

REPORT INFORMATION
  Report Type: 
  Country: None (occurrence: None)
  Receive Date: 20100611
  Receipt Date: 20100601
  Transmission Date: 20101027
  Serious: Yes (Other)
  Sender: FDA-Public Use
  Company Number: 2009S1005886

PATIENT
  Age: 58 Year
  Sex: Female

DRUGS (5)
  1. EZ PREP KIT [Suspect]
     Indication: COLONOSCOPY
     Dosage: 75 ML;TOTAL; PO
     Route: 048
     Dates: start: 20080929, end: 20080929
  2. DULCOLAX [Suspect]
     Indication: COLONOSCOPY
     Dosage: 4  DF X1, PO
     Route: 048
     Dates: start: 20080929, end: 20080929
  3. LISINOPRIL AND HYDROCHLOROTHIAZIDE [Concomitant]
  4. MULTI-VITAMINS [Concomitant]
  5. CALCIUM CARBONATE [Concomitant]

REACTIONS (10)
  - ANAEMIA [None]
  - APHAGIA [None]
  - BLOOD PRESSURE DECREASED [None]
  - DIARRHOEA [None]
  - FEELING COLD [None]
  - NAUSEA [None]
  - PROCEDURAL COMPLICATION [None]
  - RENAL FAILURE ACUTE [None]
  - RENAL FAILURE CHRONIC [None]
  - VOMITING [None]
